FAERS Safety Report 23460304 (Version 1)
Quarter: 2024Q1

REPORT INFORMATION
  Report Type: Spontaneous
  Country: US (occurrence: US)
  Receive Date: 20240131
  Receipt Date: 20240131
  Transmission Date: 20240410
  Serious: Yes (Other)
  Sender: FDA-Public Use
  Company Number: US-BAXTER-2024BAX011427

PATIENT
  Sex: Female

DRUGS (1)
  1. PENICILLIN G [Suspect]
     Active Substance: PENICILLIN G
     Dosage: AT AN UNREPORTED DOSE AND FREQUENCY
     Route: 065

REACTIONS (1)
  - Anaphylactic shock [Unknown]
